FAERS Safety Report 8525204-8 (Version None)
Quarter: 2012Q3

REPORT INFORMATION
  Report Type: 
  Country: None (occurrence: None)
  Receive Date: 20120720
  Receipt Date: 20120713
  Transmission Date: 20120928
  Serious: Yes (Hospitalization)
  Sender: FDA-Public Use
  Company Number: PHEH2012US013884

PATIENT
  Age: 28 Year
  Sex: Male
  Weight: 83.9 kg

DRUGS (1)
  1. COARTEM [Suspect]
     Indication: MALARIA
     Dosage: 20 MG ARTEMETHER AND 120 MG BENFLUMETOL
     Route: 048
     Dates: start: 20111212, end: 20111215

REACTIONS (6)
  - BLOOD LACTATE DEHYDROGENASE INCREASED [None]
  - HAEMOLYTIC ANAEMIA [None]
  - HAPTOGLOBIN DECREASED [None]
  - TOXICITY TO VARIOUS AGENTS [None]
  - PROTEIN TOTAL INCREASED [None]
  - BLOOD BILIRUBIN INCREASED [None]
